FAERS Safety Report 18691575 (Version 2)
Quarter: 2022Q3

REPORT INFORMATION
  Report Type: Report from Study
  Country: CA (occurrence: CA)
  Receive Date: 20210101
  Receipt Date: 20220711
  Transmission Date: 20221026
  Serious: Yes (Hospitalization, Other)
  Sender: FDA-Public Use
  Company Number: CA-GLAXOSMITHKLINE-CA2020AMR236401

PATIENT

DRUGS (13)
  1. ALBUTEROL SULFATE [Suspect]
     Active Substance: ALBUTEROL SULFATE
     Indication: Asthma
     Dosage: 100 UG, Z, PRN(AS NEEDED)
  2. SINGULAIR [Suspect]
     Active Substance: MONTELUKAST SODIUM
     Indication: Asthma
     Dosage: 2 DF, BID
  3. ZENHALE [Suspect]
     Active Substance: FORMOTEROL FUMARATE\MOMETASONE FUROATE
     Indication: Asthma
     Dosage: 2 PUFF(S), BID
     Route: 055
  4. FLOVENT [Suspect]
     Active Substance: FLUTICASONE PROPIONATE
     Indication: Asthma
     Dosage: 1 PUFF(S), BID
     Route: 055
     Dates: end: 20200710
  5. THEOPHYLLINE [Suspect]
     Active Substance: THEOPHYLLINE
     Indication: Asthma
     Dosage: 400 MG, QD
  6. MONTELUKAST [Suspect]
     Active Substance: MONTELUKAST SODIUM
     Indication: Asthma
     Dosage: 10 MG, QD
  7. SPIRIVA [Suspect]
     Active Substance: TIOTROPIUM BROMIDE MONOHYDRATE
     Indication: Asthma
     Dosage: 2 PUFF(S), QD
     Route: 055
  8. ALVESCO [Suspect]
     Active Substance: CICLESONIDE
     Indication: Asthma
     Dosage: 2 PUFF(S), BID
     Route: 055
  9. PREDNISONE [Suspect]
     Active Substance: PREDNISONE
     Indication: Asthma
     Dosage: 30 MG, Z, 30-60 MG FOR LAST 2 YEARS
     Route: 048
     Dates: start: 2018
  10. PREDNISONE [Suspect]
     Active Substance: PREDNISONE
     Dosage: 45 MG, QD
     Route: 048
     Dates: start: 2018
  11. SYMBICORT [Suspect]
     Active Substance: BUDESONIDE\FORMOTEROL FUMARATE DIHYDRATE
     Indication: Asthma
     Dosage: 2 PUFF(S), BID, 200/6
     Route: 055
     Dates: end: 20200710
  12. SPIRIVA RESPIMAT [Suspect]
     Active Substance: TIOTROPIUM BROMIDE
     Indication: Asthma
     Dosage: 2 PUFF(S), QD
     Route: 055
     Dates: end: 20200710
  13. AZITHROMYCIN [Suspect]
     Active Substance: AZITHROMYCIN
     Indication: Asthma
     Dosage: 250 MG, Z, 3 TIMES A WEEK

REACTIONS (26)
  - Asthma [Unknown]
  - Pain in extremity [Unknown]
  - Oesophagogastroduodenoscopy [Unknown]
  - Hypogammaglobulinaemia [Unknown]
  - Abdominal pain [Unknown]
  - Hiatus hernia [Unknown]
  - Post procedural infection [Unknown]
  - Procedural pain [Unknown]
  - Chest pain [Unknown]
  - Pain in jaw [Unknown]
  - Nausea [Unknown]
  - Pain [Unknown]
  - Dyspnoea [Unknown]
  - Vomiting [Unknown]
  - Upper respiratory tract infection [Unknown]
  - Viral infection [Unknown]
  - Adverse drug reaction [Unknown]
  - Unevaluable event [Unknown]
  - Food allergy [Unknown]
  - Disability [Unknown]
  - Eosinophil count increased [Unknown]
  - Blood test abnormal [Unknown]
  - Sleep disorder due to a general medical condition [Unknown]
  - Loss of personal independence in daily activities [Unknown]
  - Wheezing [Unknown]
  - Therapeutic product effect incomplete [Unknown]

NARRATIVE: CASE EVENT DATE: 20200802
